FAERS Safety Report 21722260 (Version 1)
Quarter: 2022Q4

REPORT INFORMATION
  Report Type: Spontaneous
  Country: US (occurrence: None)
  Receive Date: 20221212
  Receipt Date: 20221212
  Transmission Date: 20230113
  Serious: No
  Sender: FDA-Public Use
  Company Number: None

PATIENT
  Age: 43 Year
  Sex: Female

DRUGS (11)
  1. KESIMPTA [Suspect]
     Active Substance: OFATUMUMAB
     Indication: Multiple sclerosis
     Dosage: FREQUENCY : 28 DAYS?
     Route: 058
     Dates: start: 20221123
  2. SPIRIVA RESPIMAT [Concomitant]
  3. JOLESSA [Concomitant]
  4. SPIRIVA [Concomitant]
     Active Substance: TIOTROPIUM BROMIDE MONOHYDRATE
  5. ALLEGRA ALLERGY [Concomitant]
     Active Substance: FEXOFENADINE HYDROCHLORIDE
  6. AUBAGIO [Concomitant]
     Active Substance: TERIFLUNOMIDE
  7. BACLOFEN [Concomitant]
     Active Substance: BACLOFEN
  8. MULTIVITAMIN ADULTS [Concomitant]
  9. LACTOBACILLUS ACIDOPHILUS [Concomitant]
     Active Substance: LACTOBACILLUS ACIDOPHILUS
  10. PROVIGIL [Concomitant]
     Active Substance: MODAFINIL
  11. VITAMIN D [Concomitant]
     Active Substance: VITAMIN D NOS

REACTIONS (2)
  - Influenza like illness [None]
  - Nasopharyngitis [None]

NARRATIVE: CASE EVENT DATE: 20221212
